FAERS Safety Report 13514891 (Version 2)
Quarter: 2017Q2

REPORT INFORMATION
  Report Type: Spontaneous
  Country: US (occurrence: US)
  Receive Date: 20170504
  Receipt Date: 20170526
  Transmission Date: 20170830
  Serious: Yes (Hospitalization)
  Sender: FDA-Public Use
  Company Number: US-LUNDBECK-DKLU2030239

PATIENT
  Age: 18 Year
  Sex: Female
  Weight: 36 kg

DRUGS (3)
  1. KLONOPIN [Concomitant]
     Active Substance: CLONAZEPAM
     Indication: PRODUCT USED FOR UNKNOWN INDICATION
     Route: 065
  2. SABRIL [Suspect]
     Active Substance: VIGABATRIN
     Indication: MALAISE
     Route: 048
     Dates: start: 20161228, end: 20170324
  3. PHENOBARBITAL. [Concomitant]
     Active Substance: PHENOBARBITAL
     Indication: PRODUCT USED FOR UNKNOWN INDICATION
     Route: 065

REACTIONS (3)
  - Gastrointestinal necrosis [Recovering/Resolving]
  - Intestinal prolapse [Recovering/Resolving]
  - Gastrostomy tube site complication [Recovering/Resolving]

NARRATIVE: CASE EVENT DATE: 20170424
